FAERS Safety Report 9315964 (Version 1)
Quarter: 2013Q2

REPORT INFORMATION
  Report Type: Spontaneous
  Country: US (occurrence: US)
  Receive Date: 20130530
  Receipt Date: 20130530
  Transmission Date: 20140414
  Serious: Yes (Other)
  Sender: FDA-Public Use
  Company Number: US-BIOGENIDEC-2013BI046490

PATIENT
  Age: 51 Year
  Sex: Female

DRUGS (3)
  1. AVONEX [Suspect]
     Indication: MULTIPLE SCLEROSIS
     Route: 030
     Dates: start: 20080229, end: 20110501
  2. AVONEX [Suspect]
     Indication: MULTIPLE SCLEROSIS
     Route: 030
     Dates: start: 20120209, end: 20121201
  3. AVONEX [Suspect]
     Indication: MULTIPLE SCLEROSIS
     Route: 030
     Dates: start: 20130328

REACTIONS (16)
  - Carotid artery occlusion [Unknown]
  - Blood cholesterol increased [Recovered/Resolved]
  - Dysphagia [Not Recovered/Not Resolved]
  - Venous injury [Unknown]
  - Eye pain [Recovered/Resolved]
  - Viral infection [Recovered/Resolved]
  - Visual field defect [Recovered/Resolved]
  - Weight increased [Not Recovered/Not Resolved]
  - Vitamin D decreased [Unknown]
  - Lymph node pain [Not Recovered/Not Resolved]
  - Visual acuity reduced [Not Recovered/Not Resolved]
  - Oropharyngeal pain [Recovered/Resolved]
  - Lymphadenopathy [Not Recovered/Not Resolved]
  - Depression [Not Recovered/Not Resolved]
  - Heart rate increased [Not Recovered/Not Resolved]
  - Neck pain [Recovered/Resolved]
